FAERS Safety Report 25548241 (Version 1)
Quarter: 2025Q3

REPORT INFORMATION
  Report Type: Spontaneous
  Country: EU (occurrence: EU)
  Receive Date: 20250714
  Receipt Date: 20250714
  Transmission Date: 20251021
  Serious: Yes (Life-Threatening, Other)
  Sender: Haleon PLC
  Company Number: None

PATIENT
  Age: 28 Year
  Sex: Female

DRUGS (2)
  1. IBUPROFEN [Suspect]
     Active Substance: IBUPROFEN
     Indication: Pain
     Route: 048
     Dates: start: 20250524, end: 20250524
  2. LAMOTRIGINE [Suspect]
     Active Substance: LAMOTRIGINE
     Indication: Affective disorder
     Route: 048
     Dates: start: 20250524, end: 20250524

REACTIONS (6)
  - Anuria [Recovered/Resolved]
  - Hypokalaemia [Recovered/Resolved]
  - Agitation [Recovered/Resolved]
  - Myoclonus [Recovered/Resolved]
  - Somnolence [Recovered/Resolved]
  - Haemodynamic instability [Recovered/Resolved]

NARRATIVE: CASE EVENT DATE: 20250524
